FAERS Safety Report 20515106 (Version 1)
Quarter: 2022Q1

REPORT INFORMATION
  Report Type: Report from Study
  Country: GB (occurrence: GB)
  Receive Date: 20220224
  Receipt Date: 20220224
  Transmission Date: 20220423
  Serious: Yes (Other)
  Sender: FDA-Public Use
  Company Number: GB-MYLANLABS-2022M1014461

PATIENT
  Sex: Female

DRUGS (1)
  1. GLATIRAMER ACETATE [Suspect]
     Active Substance: GLATIRAMER ACETATE
     Indication: Plasma cell myeloma
     Dosage: 20 MILLIGRAM, QD (DAILY)
     Route: 058
     Dates: start: 2019

REACTIONS (5)
  - Syncope [Unknown]
  - Chest discomfort [Unknown]
  - Erythema [Unknown]
  - Dyspnoea [Unknown]
  - Feeling hot [Unknown]
